FAERS Safety Report 25831818 (Version 1)
Quarter: 2025Q3

REPORT INFORMATION
  Report Type: Report from Study
  Country: TR (occurrence: TR)
  Receive Date: 20250922
  Receipt Date: 20250922
  Transmission Date: 20251021
  Serious: Yes (Other)
  Sender: GILEAD
  Company Number: TR-GILEAD-2025-0729032

PATIENT
  Age: 53 Year
  Sex: Male

DRUGS (7)
  1. EMTRICITABINE\TENOFOVIR DISOPROXIL FUMARATE [Suspect]
     Active Substance: EMTRICITABINE\TENOFOVIR DISOPROXIL FUMARATE
     Indication: Acquired immunodeficiency syndrome
     Route: 065
  2. DOLUTEGRAVIR [Concomitant]
     Active Substance: DOLUTEGRAVIR
  3. GANCICLOVIR [Concomitant]
     Active Substance: GANCICLOVIR
     Route: 031
  4. GANCICLOVIR [Concomitant]
     Active Substance: GANCICLOVIR
     Route: 041
  5. GANCICLOVIR [Concomitant]
     Active Substance: GANCICLOVIR
     Route: 041
  6. PREDNISOLONE ACETATE [Concomitant]
     Active Substance: PREDNISOLONE ACETATE
     Route: 061
  7. DEXAMETHASONE [Concomitant]
     Active Substance: DEXAMETHASONE
     Route: 031

REACTIONS (1)
  - Immune recovery uveitis [Recovered/Resolved]
